FAERS Safety Report 8456185-3 (Version None)
Quarter: 2012Q2

REPORT INFORMATION
  Report Type: 
  Country: None (occurrence: None)
  Receive Date: 20120621
  Receipt Date: 20120615
  Transmission Date: 20120825
  Serious: Yes (Other)
  Sender: FDA-Public Use
  Company Number: PHHY2012CA052484

PATIENT
  Sex: Female

DRUGS (6)
  1. GILENYA [Suspect]
     Indication: RELAPSING-REMITTING MULTIPLE SCLEROSIS
     Dosage: 0.5 MG, QD
     Route: 048
     Dates: start: 20110831
  2. PAXIL [Concomitant]
  3. NEURONTIN [Concomitant]
  4. VITAMIN D [Concomitant]
  5. TOPAMAX [Concomitant]
  6. MAXALT [Concomitant]

REACTIONS (2)
  - CENTRAL NERVOUS SYSTEM LESION [None]
  - MULTIPLE SCLEROSIS RELAPSE [None]
